FAERS Safety Report 24771644 (Version 4)
Quarter: 2025Q2

REPORT INFORMATION
  Report Type: Report from Study
  Country: US (occurrence: US)
  Receive Date: 20241224
  Receipt Date: 20250507
  Transmission Date: 20250716
  Serious: No
  Sender: SUNOVION
  Company Number: US-SUMITOMO PHARMA SWITZERLAND GMBH-2024SPA006232

PATIENT

DRUGS (3)
  1. ORGOVYX [Suspect]
     Active Substance: RELUGOLIX
     Indication: Prostate cancer
     Dosage: 360 MG, SINGLE
     Route: 048
     Dates: start: 20241205, end: 20241205
  2. ORGOVYX [Suspect]
     Active Substance: RELUGOLIX
     Dosage: 120 MG, QD
     Route: 048
     Dates: start: 20241206
  3. NUBEQA [Concomitant]
     Active Substance: DAROLUTAMIDE
     Indication: Product used for unknown indication
     Route: 065

REACTIONS (9)
  - Feeling abnormal [Unknown]
  - Skin disorder [Unknown]
  - Illness [Unknown]
  - Hypotension [Recovered/Resolved]
  - Urinary tract infection [Unknown]
  - Dizziness [Unknown]
  - Fatigue [Unknown]
  - Hot flush [Unknown]
  - Product dose omission in error [Unknown]
